FAERS Safety Report 17208339 (Version 2)
Quarter: 2021Q4

REPORT INFORMATION
  Report Type: Spontaneous
  Country: US (occurrence: US)
  Receive Date: 20191227
  Receipt Date: 20211129
  Transmission Date: 20220303
  Serious: No
  Sender: FDA-Public Use
  Company Number: US-UCBSA-2018052155

PATIENT
  Age: 55 Year
  Sex: Male

DRUGS (5)
  1. LACOSAMIDE [Suspect]
     Active Substance: LACOSAMIDE
     Indication: Myoclonus
     Dosage: UNKNOWN DOSE
  2. LACOSAMIDE [Suspect]
     Active Substance: LACOSAMIDE
     Indication: Off label use
  3. PHENOBARBITAL [Concomitant]
     Active Substance: PHENOBARBITAL
     Indication: Myoclonus
     Dosage: UNKNOWN DOSE
  4. AMANTADINE [Concomitant]
     Active Substance: AMANTADINE
     Indication: Myoclonus
     Dosage: UNKNOWN DOSE
  5. ESCITALOPRAM [Concomitant]
     Active Substance: ESCITALOPRAM OXALATE
     Indication: Myoclonus
     Dosage: UNKNOWN DOSE

REACTIONS (1)
  - No adverse event [Unknown]
